FAERS Safety Report 9951821 (Version 2)
Quarter: 2014Q1

REPORT INFORMATION
  Report Type: Report from Study
  Country: US (occurrence: US)
  Receive Date: 20140304
  Receipt Date: 20140304
  Transmission Date: 20141002
  Serious: Yes (Hospitalization, Other)
  Sender: FDA-Public Use
  Company Number: US-ABBVIE-13P-163-1049448-00

PATIENT
  Age: 41 Year
  Sex: Male

DRUGS (18)
  1. HUMIRA [Suspect]
     Indication: COLITIS ULCERATIVE
     Dates: start: 20121012
  2. HUMIRA [Suspect]
  3. IMURAN [Suspect]
     Indication: PRODUCT USED FOR UNKNOWN INDICATION
  4. LISINOPRIL [Concomitant]
     Indication: HYPERTENSION
  5. GABAPENTIN [Concomitant]
     Indication: PAIN
     Dosage: 3000 MG DAILY - 600MG IN AM, 2400MG AT HOUR OF SLEEP
  6. TRAMADOL ER [Concomitant]
     Indication: PAIN
  7. BUPROPION 300 MG ER (WELLBUTRIN) [Concomitant]
     Indication: DEPRESSION
  8. CELEBREX [Concomitant]
     Indication: PAIN
  9. RANITIDINE [Concomitant]
     Indication: GASTRIC DISORDER
  10. PERCOCET [Concomitant]
     Indication: PAIN
     Dosage: 7.5/325 MG, 4 TIMES A DAY AS NEEDED
  11. LASIX [Concomitant]
     Indication: OEDEMA PERIPHERAL
  12. LIALDA [Concomitant]
     Indication: PRODUCT USED FOR UNKNOWN INDICATION
     Dosage: 1.2 MG 2 TABLETS DAILY
  13. LOMOTIL [Concomitant]
     Indication: PRODUCT USED FOR UNKNOWN INDICATION
  14. LOPERAMIDE [Concomitant]
     Indication: PRODUCT USED FOR UNKNOWN INDICATION
  15. MORPHONE EXTENDED RELEASE [Concomitant]
     Indication: PRODUCT USED FOR UNKNOWN INDICATION
  16. TRIAMCINOLONE [Concomitant]
     Indication: PRODUCT USED FOR UNKNOWN INDICATION
     Dosage: DAILY
     Route: 061
  17. HYDROCORTISONE [Concomitant]
     Indication: PRODUCT USED FOR UNKNOWN INDICATION
  18. PROCTOFOAM [Concomitant]
     Indication: PRODUCT USED FOR UNKNOWN INDICATION

REACTIONS (8)
  - Colitis ulcerative [Not Recovered/Not Resolved]
  - Skin lesion [Not Recovered/Not Resolved]
  - Skin infection [Not Recovered/Not Resolved]
  - Staphylococcal infection [Unknown]
  - Immunosuppression [Unknown]
  - Injection site bruising [Recovering/Resolving]
  - Pruritus [Unknown]
  - Insomnia [Unknown]
